FAERS Safety Report 4851518-9 (Version None)
Quarter: 2005Q4

REPORT INFORMATION
  Report Type: 
  Country: None (occurrence: None)
  Receive Date: 20051212
  Receipt Date: 20051104
  Transmission Date: 20060501
  Serious: Yes (Hospitalization)
  Sender: FDA-Public Use
  Company Number: AR-ROCHE-423565

PATIENT
  Age: 52 Year
  Sex: Male

DRUGS (6)
  1. PEG-INTERFERON ALFA 2A (RO 25-8310) [Suspect]
     Route: 058
     Dates: start: 20050106, end: 20051020
  2. RIBAVIRIN [Suspect]
     Route: 048
     Dates: start: 20050106, end: 20051021
  3. MOSAPRIDE [Concomitant]
     Indication: DYSPEPSIA
     Dates: start: 20050303
  4. PANTOPRAZOLE [Concomitant]
     Indication: DYSPEPSIA
     Dates: start: 20050421
  5. IBUPROFEN [Concomitant]
     Indication: MYALGIA
     Dates: start: 20050715
  6. TRIAMCINOLONE [Concomitant]
     Indication: DERMATITIS

REACTIONS (2)
  - HEPATOMEGALY [None]
  - MENINGITIS BACTERIAL [None]
